FAERS Safety Report 8509443-8 (Version None)
Quarter: 2012Q3

REPORT INFORMATION
  Report Type: 
  Country: None (occurrence: None)
  Receive Date: 20120713
  Receipt Date: 20120705
  Transmission Date: 20120928
  Serious: Yes (Hospitalization)
  Sender: FDA-Public Use
  Company Number: FR-ALLERGAN-1209286US

PATIENT
  Age: 54 Year
  Sex: Female

DRUGS (1)
  1. BIMATOPROST AND TIMOLOL MALEATE [Suspect]
     Indication: PRODUCT USED FOR UNKNOWN INDICATION
     Dosage: UNK
     Route: 065
     Dates: start: 20120601, end: 20120601

REACTIONS (1)
  - URTICARIA [None]
